FAERS Safety Report 10166630 (Version 2)
Quarter: 2014Q2

REPORT INFORMATION
  Report Type: Spontaneous
  Country: US (occurrence: US)
  Receive Date: 20140512
  Receipt Date: 20140513
  Transmission Date: 20141212
  Serious: Yes (Other)
  Sender: FDA-Public Use
  Company Number: US-RB-065660-14

PATIENT
  Sex: Male

DRUGS (1)
  1. MUCINEX DM MAXIMUM STRENGTH [Suspect]
     Indication: EUPHORIC MOOD
     Dosage: UNKNOWN.
     Route: 048

REACTIONS (3)
  - Drug abuse [Unknown]
  - Intentional overdose [Unknown]
  - No adverse event [Unknown]
